FAERS Safety Report 9443105 (Version 2)
Quarter: 2013Q3

REPORT INFORMATION
  Report Type: Spontaneous
  Country: US (occurrence: US)
  Receive Date: 20130806
  Receipt Date: 20130822
  Transmission Date: 20140515
  Serious: Yes (Life-Threatening, Hospitalization)
  Sender: FDA-Public Use
  Company Number: US-GLAXOSMITHKLINE-A1035710A

PATIENT
  Age: 73 Year
  Sex: Male
  Weight: 79.1 kg

DRUGS (3)
  1. ARZERRA [Suspect]
     Indication: CHRONIC LYMPHOCYTIC LEUKAEMIA
     Dosage: 300MG SEE DOSAGE TEXT
     Route: 042
     Dates: start: 20130604
  2. ANTIBIOTICS [Suspect]
     Indication: PNEUMONIA
     Route: 065
  3. BACTRIM [Concomitant]

REACTIONS (3)
  - Pneumonia [Recovering/Resolving]
  - Oxygen saturation decreased [Unknown]
  - No therapeutic response [Unknown]
